FAERS Safety Report 6294997-5 (Version None)
Quarter: 2009Q3

REPORT INFORMATION
  Report Type: 
  Country: None (occurrence: None)
  Receive Date: 20090803
  Receipt Date: 20090729
  Transmission Date: 20100115
  Serious: Yes (Disabling, Other)
  Sender: FDA-Public Use
  Company Number: US-MERCK-0906USA03186

PATIENT
  Age: 61 Year
  Sex: Male

DRUGS (7)
  1. LIPITOR [Suspect]
     Indication: HYPERLIPIDAEMIA
     Route: 048
     Dates: start: 20010313, end: 20040601
  2. LIPITOR [Suspect]
     Indication: TRANSIENT ISCHAEMIC ATTACK
     Route: 048
     Dates: start: 20010313, end: 20040601
  3. ZOCOR [Suspect]
     Route: 048
  4. VYTORIN [Suspect]
     Route: 048
  5. CRESTOR [Suspect]
     Route: 065
  6. PLAVIX [Concomitant]
     Route: 065
  7. NORVASC [Concomitant]
     Route: 065

REACTIONS (3)
  - IMPAIRED WORK ABILITY [None]
  - MYALGIA [None]
  - PAIN [None]
